FAERS Safety Report 7772284-3 (Version None)
Quarter: 2011Q3

REPORT INFORMATION
  Report Type: 
  Country: None (occurrence: None)
  Receive Date: 20110922
  Receipt Date: 20100913
  Transmission Date: 20111222
  Serious: No
  Sender: FDA-Public Use
  Company Number: US-ASTRAZENECA-2010SE43173

PATIENT
  Sex: Male

DRUGS (1)
  1. SEROQUEL [Suspect]
     Indication: PSYCHOTIC DISORDER
     Route: 048

REACTIONS (3)
  - TOOTH EXTRACTION [None]
  - WRONG TECHNIQUE IN DRUG USAGE PROCESS [None]
  - THERAPEUTIC RESPONSE UNEXPECTED [None]
